FAERS Safety Report 11458504 (Version 1)
Quarter: 2015Q3

REPORT INFORMATION
  Report Type: Spontaneous
  Country: US (occurrence: US)
  Receive Date: 20150904
  Receipt Date: 20150904
  Transmission Date: 20151125
  Serious: Yes (Other)
  Sender: FDA-Public Use
  Company Number: US-TAKEDA-2014TUS005376

PATIENT

DRUGS (8)
  1. HUMALOG [Concomitant]
     Active Substance: INSULIN LISPRO
     Dosage: 8 IU, UNK
     Dates: start: 20131220
  2. METFORMIN [Concomitant]
     Active Substance: METFORMIN HYDROCHLORIDE
     Dosage: 1000 MG, BID
     Dates: start: 20060616, end: 201401
  3. NOVOLOG 70/30 [Concomitant]
     Indication: DIABETES MELLITUS
     Dosage: 20 IU, BID BEFORE BREAKFAST AND SUPPER
     Dates: start: 20140113
  4. ACTOS [Suspect]
     Active Substance: PIOGLITAZONE HYDROCHLORIDE
     Indication: TYPE 2 DIABETES MELLITUS
     Dosage: 45 MG, UNK
     Route: 048
     Dates: start: 20060620, end: 20130807
  5. DIABETA                            /00145301/ [Concomitant]
     Dosage: UNK
     Dates: start: 2013
  6. JANUVIA [Concomitant]
     Active Substance: SITAGLIPTIN PHOSPHATE
     Dosage: 25 MG, UNK
     Dates: start: 20131219, end: 20140113
  7. GLUCOTROL [Concomitant]
     Active Substance: GLIPIZIDE
     Dosage: 5 MG, BID
     Dates: start: 2008
  8. EMPIRIN COMPOUND [Concomitant]
     Dosage: 81 MG, QD
     Dates: start: 2008

REACTIONS (1)
  - Bladder cancer [Unknown]

NARRATIVE: CASE EVENT DATE: 20130724
